FAERS Safety Report 11876290 (Version 2)
Quarter: 2016Q1

REPORT INFORMATION
  Report Type: Spontaneous
  Country: US (occurrence: US)
  Receive Date: 20151229
  Receipt Date: 20160104
  Transmission Date: 20160526
  Serious: No
  Sender: FDA-Public Use
  Company Number: US-TEVA-619712USA

PATIENT
  Age: 70 Year
  Sex: Female
  Weight: 59.02 kg

DRUGS (17)
  1. QVAR [Suspect]
     Active Substance: BECLOMETHASONE DIPROPIONATE
     Indication: ASTHMA
     Route: 065
     Dates: start: 2013
  2. GARLIC. [Concomitant]
     Active Substance: GARLIC
     Indication: NUTRITIONAL SUPPLEMENTATION
  3. VITAMIN D [Concomitant]
     Active Substance: CHOLECALCIFEROL
     Indication: NUTRITIONAL SUPPLEMENTATION
  4. QVAR [Suspect]
     Active Substance: BECLOMETHASONE DIPROPIONATE
     Indication: BRONCHITIS
  5. POTASSIUM [Concomitant]
     Active Substance: POTASSIUM
     Indication: NUTRITIONAL SUPPLEMENTATION
  6. BIOTIN [Concomitant]
     Active Substance: BIOTIN
     Indication: NUTRITIONAL SUPPLEMENTATION
  7. EVENING PRIMROSE OIL [Concomitant]
     Active Substance: EVENING PRIMROSE OIL
     Indication: NUTRITIONAL SUPPLEMENTATION
  8. ALBUTEROL. [Concomitant]
     Active Substance: ALBUTEROL
     Indication: ASTHMA
  9. FLAXSEED [Concomitant]
     Active Substance: FLAX SEED
     Indication: NUTRITIONAL SUPPLEMENTATION
  10. FISH OIL [Concomitant]
     Active Substance: FISH OIL
     Indication: NUTRITIONAL SUPPLEMENTATION
  11. VITAMIN B NOS [Concomitant]
     Active Substance: VITAMIN B
     Indication: NUTRITIONAL SUPPLEMENTATION
  12. HAWTHORN [Concomitant]
     Indication: NUTRITIONAL SUPPLEMENTATION
  13. MAGNESIUM [Concomitant]
     Active Substance: MAGNESIUM
     Indication: NUTRITIONAL SUPPLEMENTATION
  14. HERBALS NOS W/MINERALS NOS/VITAMINS NOS [Concomitant]
     Indication: NUTRITIONAL SUPPLEMENTATION
  15. SELENIUM [Concomitant]
     Active Substance: SELENIUM
     Indication: NUTRITIONAL SUPPLEMENTATION
  16. CAT^S CLAW [Concomitant]
     Active Substance: CAT^S CLAW
     Indication: NUTRITIONAL SUPPLEMENTATION
  17. CALCIUM [Concomitant]
     Active Substance: CALCIUM
     Indication: NUTRITIONAL SUPPLEMENTATION

REACTIONS (6)
  - Cataract [Not Recovered/Not Resolved]
  - Pain [Not Recovered/Not Resolved]
  - Cough [Unknown]
  - Arthritis [Not Recovered/Not Resolved]
  - Dyspepsia [Unknown]
  - Abdominal discomfort [Unknown]

NARRATIVE: CASE EVENT DATE: 201506
